FAERS Safety Report 9065141 (Version 1)
Quarter: 2013Q1

REPORT INFORMATION
  Report Type: Spontaneous
  Country: US (occurrence: US)
  Receive Date: 20130214
  Receipt Date: 20130214
  Transmission Date: 20140127
  Serious: No
  Sender: FDA-Public Use
  Company Number: US-PFIZER INC-2013054846

PATIENT
  Sex: Male
  Weight: 100 kg

DRUGS (5)
  1. LYRICA [Suspect]
     Indication: NEURALGIA
     Dosage: UNK
     Dates: start: 201301, end: 201302
  2. NEURONTIN [Suspect]
     Indication: NEURALGIA
     Dosage: UNK
     Dates: end: 201301
  3. NEURONTIN [Suspect]
     Dosage: UNK
     Dates: start: 201302
  4. PRILOSEC [Concomitant]
     Indication: GASTROOESOPHAGEAL REFLUX DISEASE
     Dosage: UNK
  5. MELOXICAM [Concomitant]
     Indication: INFLAMMATION
     Dosage: UNK

REACTIONS (1)
  - Drug ineffective [Unknown]
